FAERS Safety Report 8075950-8 (Version None)
Quarter: 2012Q1

REPORT INFORMATION
  Report Type: 
  Country: None (occurrence: None)
  Receive Date: 20120125
  Receipt Date: 20120125
  Transmission Date: 20120608
  Serious: Yes (Hospitalization)
  Sender: FDA-Public Use
  Company Number: None

PATIENT
  Age: 82 Year
  Sex: Male
  Weight: 63.4 kg

DRUGS (2)
  1. LISINOPRIL [Suspect]
     Indication: HYPERTENSION
     Dosage: 10 MG EVERY DAY PO
     Route: 048
     Dates: start: 20111123, end: 20120120
  2. CARVEDILOL [Suspect]
     Indication: HYPERTENSION
     Dosage: 6.25 MG BID PO
     Route: 048
     Dates: start: 20111003, end: 20120120

REACTIONS (1)
  - HYPOTENSION [None]
